FAERS Safety Report 5257838-0 (Version None)
Quarter: 2007Q1

REPORT INFORMATION
  Report Type: 
  Country: None (occurrence: None)
  Receive Date: 20070307
  Receipt Date: 20061128
  Transmission Date: 20070707
  Serious: No
  Sender: FDA-Public Use
  Company Number: US-GLAXOSMITHKLINE-A0620703A

PATIENT
  Age: 70 Year
  Sex: Female

DRUGS (9)
  1. REQUIP [Suspect]
     Indication: RESTLESS LEGS SYNDROME
     Route: 048
     Dates: start: 20050715, end: 20060920
  2. LOTENSIN [Concomitant]
  3. BENAZEPRIL HYDROCHLORIDE [Concomitant]
  4. SYNTHROID [Concomitant]
  5. PRILOSEC [Concomitant]
  6. PRAVACHOL [Concomitant]
  7. IMIPRAMINE [Concomitant]
  8. LORA TAB [Concomitant]
  9. NIFEDIPINE [Concomitant]

REACTIONS (5)
  - BREAST PAIN [None]
  - DECREASED APPETITE [None]
  - DRY MOUTH [None]
  - DRY THROAT [None]
  - JOINT SWELLING [None]
